FAERS Safety Report 7369233-9 (Version None)
Quarter: 2011Q1

REPORT INFORMATION
  Report Type: 
  Country: None (occurrence: None)
  Receive Date: 20110323
  Receipt Date: 20110314
  Transmission Date: 20110831
  Serious: Yes (Other)
  Sender: FDA-Public Use
  Company Number: US-ROCHE-765667

PATIENT
  Sex: Female

DRUGS (1)
  1. BONIVA [Suspect]
     Indication: OSTEOPOROSIS
     Route: 065

REACTIONS (4)
  - LOW TURNOVER OSTEOPATHY [None]
  - OSTEONECROSIS OF JAW [None]
  - ANXIETY [None]
  - FEMUR FRACTURE [None]
